FAERS Safety Report 14869814 (Version 1)
Quarter: 2018Q2

REPORT INFORMATION
  Report Type: Report from Study
  Country: None (occurrence: IL)
  Receive Date: 20180509
  Receipt Date: 20180509
  Transmission Date: 20180711
  Serious: Yes (Other)
  Sender: FDA-Public Use
  Company Number: IL-ABBVIE-18K-082-2336627-00

PATIENT
  Sex: Male

DRUGS (1)
  1. DUODOPA [Suspect]
     Active Substance: CARBIDOPA\LEVODOPA
     Indication: PARKINSON^S DISEASE
     Dosage: CURRENT MD 5 ML,CURRENT FIXED RATE 3.4 ML/ HR,CURRENT ND- 3.0 ML,CURRENT EXTRA DOSE 0.1 ML
     Route: 050
     Dates: start: 20140220

REACTIONS (7)
  - On and off phenomenon [Unknown]
  - Tremor [Not Recovered/Not Resolved]
  - Fall [Unknown]
  - Dyskinesia [Unknown]
  - Gait disturbance [Unknown]
  - Balance disorder [Unknown]
  - Freezing phenomenon [Unknown]
